FAERS Safety Report 11026735 (Version 1)
Quarter: 2015Q2

REPORT INFORMATION
  Report Type: Report from Study
  Country: ES (occurrence: ES)
  Receive Date: 20150414
  Receipt Date: 20150414
  Transmission Date: 20150821
  Serious: Yes (Hospitalization)
  Sender: FDA-Public Use
  Company Number: PHHO2015ES003283

PATIENT
  Age: 67 Year
  Sex: Male
  Weight: 65 kg

DRUGS (4)
  1. ATORVASTATIN [Concomitant]
     Active Substance: ATORVASTATIN
     Indication: DYSLIPIDAEMIA
     Dosage: 100 MG, QD
     Route: 048
     Dates: start: 20130624
  2. BLINDED LCZ696 [Suspect]
     Active Substance: SACUBITRIL
     Indication: ESSENTIAL HYPERTENSION
     Dosage: CODE NOT BROKEN
     Route: 048
     Dates: start: 20140527
  3. BLINDED NO TREATMENT RECEIVED [Suspect]
     Active Substance: UNSPECIFIED INGREDIENT
     Indication: ESSENTIAL HYPERTENSION
     Dosage: CODE NOT BROKEN
     Route: 048
     Dates: start: 20140527
  4. BLINDED OLMESARTAN [Suspect]
     Active Substance: OLMESARTAN
     Indication: ESSENTIAL HYPERTENSION
     Dosage: CODE NOT BROKEN
     Route: 048
     Dates: start: 20140527

REACTIONS (6)
  - Iron deficiency anaemia [Recovered/Resolved]
  - Appendicitis [Recovering/Resolving]
  - Coagulopathy [Recovered/Resolved]
  - Atelectasis [Recovering/Resolving]
  - Douglas^ abscess [Recovered/Resolved]
  - Peritonitis [Recovered/Resolved]

NARRATIVE: CASE EVENT DATE: 20150303
